FAERS Safety Report 14676140 (Version 1)
Quarter: 2018Q1

REPORT INFORMATION
  Report Type: Spontaneous
  Country: ES (occurrence: ES)
  Receive Date: 20180323
  Receipt Date: 20180323
  Transmission Date: 20180509
  Serious: Yes (Hospitalization)
  Sender: FDA-Public Use
  Company Number: PHHY2018ES050044

PATIENT
  Age: 41 Year
  Sex: Male

DRUGS (7)
  1. CLEXANE [Concomitant]
     Active Substance: ENOXAPARIN SODIUM
     Indication: PROPHYLAXIS
     Dosage: 40 MG, QD
     Route: 058
  2. VANCOMICINA [Concomitant]
     Active Substance: VANCOMYCIN
     Indication: POSTOPERATIVE WOUND INFECTION
     Dosage: 3750 MG, QD
     Route: 042
     Dates: start: 20171201
  3. PARACETAMOL [Concomitant]
     Active Substance: ACETAMINOPHEN
     Indication: PAIN
     Dosage: 1 G, Q6H
     Route: 048
  4. NOLOTIL (METAMIZOLE MAGNESIUM) [Concomitant]
     Active Substance: METAMIZOLE MAGNESIUM
     Indication: PAIN
     Dosage: 575 MG, Q8H
     Route: 048
     Dates: start: 20171110
  5. RIFAMPICIN [Suspect]
     Active Substance: RIFAMPIN
     Indication: POSTOPERATIVE WOUND INFECTION
     Dosage: 600 MG, QD
     Route: 048
     Dates: start: 20171212, end: 20171228
  6. OMEPRAZOL [Concomitant]
     Active Substance: OMEPRAZOLE
     Indication: PROPHYLAXIS AGAINST GASTROINTESTINAL ULCER
     Dosage: 40 MG, QD
     Route: 048
     Dates: start: 20171110
  7. CIPROFLOXACIN. [Concomitant]
     Active Substance: CIPROFLOXACIN
     Indication: POSTOPERATIVE WOUND INFECTION
     Dosage: 750 MG, QD
     Route: 048
     Dates: start: 20171201

REACTIONS (3)
  - Hypertransaminasaemia [Recovered/Resolved]
  - Pyrexia [Recovered/Resolved]
  - Rash maculo-papular [Recovered/Resolved]

NARRATIVE: CASE EVENT DATE: 20171222
